FAERS Safety Report 4985742-1 (Version None)
Quarter: 2006Q2

REPORT INFORMATION
  Report Type: 
  Country: None (occurrence: None)
  Receive Date: 20060421
  Receipt Date: 20060410
  Transmission Date: 20061013
  Serious: Yes (Other)
  Sender: FDA-Public Use
  Company Number: 2006EN000106

PATIENT
  Age: 10 Month
  Sex: Male

DRUGS (1)
  1. ADAGEN [Suspect]
     Dosage: UNKNOWN, IM, 180 IU, BIW, IM
     Route: 030

REACTIONS (1)
  - ANAEMIA HAEMOLYTIC AUTOIMMUNE [None]
